FAERS Safety Report 8112521-9 (Version None)
Quarter: 2012Q1

REPORT INFORMATION
  Report Type: 
  Country: None (occurrence: None)
  Receive Date: 20120131
  Receipt Date: 20120117
  Transmission Date: 20120608
  Serious: Yes (Other)
  Sender: FDA-Public Use
  Company Number: 2012MA000770

PATIENT
  Sex: Female

DRUGS (25)
  1. ASPIRIN [Concomitant]
  2. LASIX [Concomitant]
  3. NOVOLIN 70/30 [Concomitant]
  4. DARVOCET [Concomitant]
  5. APAP TAB [Concomitant]
  6. TEMAZEPAM [Concomitant]
  7. KAYEXALATE [Concomitant]
  8. LOVENOX [Concomitant]
  9. BISACODYL [Concomitant]
  10. COREG [Concomitant]
  11. LISINOPRIL [Concomitant]
  12. FLEXERIL [Concomitant]
  13. M.V.I. [Concomitant]
  14. NEXIUM [Concomitant]
  15. NITROGLYCERIN [Concomitant]
  16. PERCOCET [Concomitant]
  17. INSULIN [Concomitant]
  18. TORADOL [Concomitant]
  19. LIPITOR [Concomitant]
  20. DIGOXIN [Suspect]
     Dosage: 0.125 MG; QD; PO
     Route: 048
     Dates: start: 20030425, end: 20090504
  21. LYRICA [Concomitant]
  22. MOBIC [Concomitant]
  23. SPIRONOLACTONE [Concomitant]
  24. PRILOSEC [Concomitant]
  25. DIALYTE [Concomitant]

REACTIONS (21)
  - TYPE 2 DIABETES MELLITUS [None]
  - MICROCYTIC ANAEMIA [None]
  - FLANK PAIN [None]
  - HYPERTENSION [None]
  - HYPERKALAEMIA [None]
  - ABDOMINAL PAIN [None]
  - CORONARY ARTERY DISEASE [None]
  - HYPOGLYCAEMIA [None]
  - RENAL TUBULAR NECROSIS [None]
  - BLOOD PRESSURE SYSTOLIC INCREASED [None]
  - DIVERTICULUM INTESTINAL [None]
  - DIARRHOEA [None]
  - NAUSEA [None]
  - RENAL FAILURE ACUTE [None]
  - GASTRITIS EROSIVE [None]
  - HAEMORRHOIDS [None]
  - MITRAL VALVE INCOMPETENCE [None]
  - DIASTOLIC DYSFUNCTION [None]
  - HAEMODIALYSIS [None]
  - DIALYSIS [None]
  - METABOLIC ACIDOSIS [None]
